FAERS Safety Report 12105423 (Version 1)
Quarter: 2016Q1

REPORT INFORMATION
  Report Type: Spontaneous
  Country: US (occurrence: None)
  Receive Date: 20160222
  Receipt Date: 20160222
  Transmission Date: 20160526
  Serious: No
  Sender: FDA-Public Use
  Company Number: None

PATIENT
  Age: 88 Year
  Sex: Male
  Weight: 83.92 kg

DRUGS (9)
  1. ACEBUTOLOL [Concomitant]
     Active Substance: ACEBUTOLOL
  2. BABY ASPIRIN [Concomitant]
     Active Substance: ASPIRIN
  3. TRAMADOL. [Suspect]
     Active Substance: TRAMADOL
     Indication: ARTHRALGIA
     Dosage: 60 1-TWICE DAILY MOUTH
     Route: 048
     Dates: start: 20160120, end: 20160122
  4. FINASTERIDE. [Concomitant]
     Active Substance: FINASTERIDE
  5. DOXAZOSIN [Concomitant]
     Active Substance: DOXAZOSIN\DOXAZOSIN MESYLATE
  6. GABAPENTIN. [Concomitant]
     Active Substance: GABAPENTIN
  7. CALICUM [Concomitant]
  8. ATORVASTERIDE [Concomitant]
  9. MULTI VITAMENS [Concomitant]

REACTIONS (1)
  - Hypotension [None]

NARRATIVE: CASE EVENT DATE: 20160120
